FAERS Safety Report 6202632-7 (Version None)
Quarter: 2009Q2

REPORT INFORMATION
  Report Type: 
  Country: None (occurrence: None)
  Receive Date: 20090526
  Receipt Date: 20090520
  Transmission Date: 20091009
  Serious: No
  Sender: FDA-Public Use
  Company Number: US-B.I. PHARMACEUTICALS,INC./RIDGEFIELD-2009-BP-06340BP

PATIENT
  Sex: Female

DRUGS (3)
  1. SPIRIVA [Suspect]
     Indication: CHRONIC OBSTRUCTIVE PULMONARY DISEASE
     Dosage: 18MCG
     Route: 055
     Dates: start: 20090429
  2. SPIRIVA [Suspect]
     Indication: EMPHYSEMA
  3. ZOLOFT [Concomitant]
     Indication: ANXIETY
     Dosage: 37.5MG
     Route: 048

REACTIONS (1)
  - BRONCHITIS [None]
